FAERS Safety Report 20502531 (Version 1)
Quarter: 2022Q1

REPORT INFORMATION
  Report Type: Spontaneous
  Country: US (occurrence: None)
  Receive Date: 20220221
  Receipt Date: 20220221
  Transmission Date: 20220423
  Serious: Yes (Other)
  Sender: FDA-Public Use
  Company Number: None

PATIENT
  Sex: Female

DRUGS (1)
  1. SKYRIZI [Suspect]
     Active Substance: RISANKIZUMAB-RZAA
     Indication: Psoriasis
     Dosage: OTHER FREQUENCY : AT WEEK 0,4;??150  MG                             AT WEEK 0, WEEK 4?SUBCUTANEOCSLY
     Route: 058
     Dates: start: 20220131

REACTIONS (1)
  - Therapy non-responder [None]
